FAERS Safety Report 7632712-0 (Version None)
Quarter: 2011Q3

REPORT INFORMATION
  Report Type: 
  Country: None (occurrence: None)
  Receive Date: 20110725
  Receipt Date: 20110712
  Transmission Date: 20111222
  Serious: Yes (Hospitalization)
  Sender: FDA-Public Use
  Company Number: US-UCBSA-037053

PATIENT
  Sex: Female
  Weight: 68.18 kg

DRUGS (6)
  1. IMURAN [Concomitant]
     Indication: ARTHRITIS
     Dosage: DOSE PER INTAKE: 1 TAB; TOTAL DAILY DOSE:2 TABS; THERAPY DATE FROM: MANY YEARS
     Route: 048
  2. LYRICA [Concomitant]
     Indication: FIBROMYALGIA
     Dosage: THERAPY DATE FROM: MANY YEARS
     Route: 048
  3. CYMBALTA [Concomitant]
     Indication: DEPRESSION
     Dosage: THERAPY DATE FROM:MANY YEARS
     Route: 048
  4. CIMZIA [Suspect]
     Indication: RHEUMATOID ARTHRITIS
     Route: 058
     Dates: start: 20100701, end: 20110708
  5. CELEBREX [Concomitant]
     Indication: ARTHRITIS
     Dosage: THERAPY DATE FROM:MANY YEARS
     Route: 048
  6. CRESTOR [Concomitant]
     Indication: BLOOD CHOLESTEROL
     Dosage: DOSE PER INTAKE: 1 TAB; TOTAL DAILY DOSE: 1 TAB; THERAPY DATE FROM: MANY YEARS
     Route: 048

REACTIONS (4)
  - COLONIC POLYP [None]
  - ABDOMINAL DISCOMFORT [None]
  - THROMBOSIS [None]
  - INJECTION SITE PAIN [None]
